FAERS Safety Report 10817026 (Version 1)
Quarter: 2015Q1

REPORT INFORMATION
  Report Type: Report from Study
  Country: US (occurrence: US)
  Receive Date: 20150218
  Receipt Date: 20150218
  Transmission Date: 20150721
  Serious: No
  Sender: FDA-Public Use
  Company Number: US-ABBVIE-14K-163-1286821-00

PATIENT
  Age: 49 Year
  Sex: Male

DRUGS (7)
  1. PENTASA [Concomitant]
     Active Substance: MESALAMINE
     Indication: CROHN^S DISEASE
  2. HUMIRA [Suspect]
     Active Substance: ADALIMUMAB
     Indication: CROHN^S DISEASE
     Dates: start: 20140912, end: 20140912
  3. HUMIRA [Suspect]
     Active Substance: ADALIMUMAB
  4. GAS-X [Concomitant]
     Active Substance: DIMETHICONE
     Indication: PRODUCT USED FOR UNKNOWN INDICATION
     Dosage: ONCE IN A GREAT WHILE OTC
  5. OMEPRAZOLE. [Concomitant]
     Active Substance: OMEPRAZOLE
     Indication: PRODUCT USED FOR UNKNOWN INDICATION
     Dosage: STOMACH PILL
  6. LISINOPRIL. [Concomitant]
     Active Substance: LISINOPRIL
     Indication: HYPERTENSION
  7. PRAVASTATIN [Concomitant]
     Active Substance: PRAVASTATIN\PRAVASTATIN SODIUM
     Indication: BLOOD CHOLESTEROL INCREASED

REACTIONS (2)
  - Hair texture abnormal [Not Recovered/Not Resolved]
  - Alopecia [Not Recovered/Not Resolved]

NARRATIVE: CASE EVENT DATE: 20140915
